FAERS Safety Report 4732483-1 (Version None)
Quarter: 2005Q3

REPORT INFORMATION
  Report Type: 
  Country: None (occurrence: None)
  Receive Date: 20050801
  Receipt Date: 20050801
  Transmission Date: 20060218
  Serious: Yes (Other)
  Sender: FDA-Public Use
  Company Number: None

PATIENT
  Age: 49 Year
  Sex: Male
  Weight: 110 kg

DRUGS (4)
  1. PROMETHAZINE [Suspect]
     Indication: NAUSEA
     Dosage: 25MG IVP
     Route: 042
     Dates: start: 20050407
  2. PROMETHAZINE [Suspect]
     Indication: VOMITING
     Dosage: 25MG IVP
     Route: 042
     Dates: start: 20050407
  3. NTG SL [Concomitant]
  4. MORPHINE [Concomitant]

REACTIONS (2)
  - HYPOTENSION [None]
  - THERAPY NON-RESPONDER [None]
